FAERS Safety Report 10238887 (Version 2)
Quarter: 2014Q2

REPORT INFORMATION
  Report Type: Report from Study
  Country: US (occurrence: US)
  Receive Date: 20140616
  Receipt Date: 20140625
  Transmission Date: 20141212
  Serious: Yes (Hospitalization, Other)
  Sender: FDA-Public Use
  Company Number: US-BAXTER-2014BAX030096

PATIENT
  Age: 14 Year
  Sex: Male
  Weight: 68.95 kg

DRUGS (4)
  1. GAMMAGARD LIQUID [Suspect]
     Indication: IMMUNODEFICIENCY
     Route: 058
     Dates: start: 201304
  2. GAMMAGARD LIQUID [Suspect]
     Route: 058
     Dates: start: 2014
  3. NORVASC [Concomitant]
     Indication: HYPERTENSION
     Route: 048
  4. NORVASC [Concomitant]
     Route: 048

REACTIONS (4)
  - Meningitis [Recovered/Resolved]
  - Eye infection [Not Recovered/Not Resolved]
  - Pneumonia [Recovered/Resolved]
  - Hordeolum [Recovered/Resolved]
